FAERS Safety Report 4489221-X (Version None)
Quarter: 2004Q4

REPORT INFORMATION
  Report Type: 
  Country: None (occurrence: None)
  Receive Date: 20041029
  Receipt Date: 20041005
  Transmission Date: 20050328
  Serious: Yes (Life-Threatening, Disabling)
  Sender: FDA-Public Use
  Company Number: US-MERCK-0410USA00706

PATIENT
  Age: 55 Year
  Sex: Female

DRUGS (1)
  1. FOSAMAX [Suspect]
     Indication: OSTEOPOROSIS PROPHYLAXIS
     Route: 048
     Dates: start: 20040912, end: 20040101

REACTIONS (10)
  - CONFUSIONAL STATE [None]
  - DYSPHAGIA [None]
  - DYSPNOEA [None]
  - ERYTHEMA MULTIFORME [None]
  - FATIGUE [None]
  - HYPOTENSION [None]
  - HYPOVENTILATION [None]
  - MENTAL DISORDER [None]
  - STEVENS-JOHNSON SYNDROME [None]
  - STOMATITIS [None]
